FAERS Safety Report 6217715-5 (Version None)
Quarter: 2009Q2

REPORT INFORMATION
  Report Type: 
  Country: None (occurrence: None)
  Receive Date: 20090604
  Receipt Date: 20090604
  Transmission Date: 20091009
  Serious: Yes (Hospitalization)
  Sender: FDA-Public Use
  Company Number: None

PATIENT
  Sex: Female
  Weight: 76.8 kg

DRUGS (1)
  1. AZACITIDINE [Suspect]
     Indication: ACUTE MYELOID LEUKAEMIA
     Dosage: 75MG/M2 QD S/C
     Route: 058
     Dates: start: 20090519, end: 20090525

REACTIONS (3)
  - PERFORMANCE STATUS DECREASED [None]
  - PYREXIA [None]
  - RALES [None]
